FAERS Safety Report 12312486 (Version 1)
Quarter: 2016Q2

REPORT INFORMATION
  Report Type: Spontaneous
  Country: US (occurrence: US)
  Receive Date: 20160428
  Receipt Date: 20160428
  Transmission Date: 20160815
  Serious: Yes (Other)
  Sender: FDA-Public Use
  Company Number: US-HOSPIRA-3262303

PATIENT
  Age: 41 Year
  Sex: Female
  Weight: 165.3 kg

DRUGS (11)
  1. NEOSTIGMINE [Suspect]
     Active Substance: NEOSTIGMINE
     Indication: NEUROMUSCULAR BLOCKADE REVERSAL
     Dosage: DOSE UNIT: UNKNOWN
     Route: 065
  2. DOLASETRON [Suspect]
     Active Substance: DOLASETRON
     Indication: PRODUCT USED FOR UNKNOWN INDICATION
     Dosage: DOSE UNIT: UNKNOWN
     Route: 065
  3. PROPOFOL. [Concomitant]
     Active Substance: PROPOFOL
     Indication: PRODUCT USED FOR UNKNOWN INDICATION
     Route: 065
  4. DEXMEDETOMIDINE HYDROCHLORIDE. [Suspect]
     Active Substance: DEXMEDETOMIDINE HYDROCHLORIDE
     Indication: PRODUCT USED FOR UNKNOWN INDICATION
     Dosage: DOSE UNIT: UNKNOWN
     Route: 065
  5. VECURONIUM [Concomitant]
     Active Substance: VECURONIUM BROMIDE
     Indication: PRODUCT USED FOR UNKNOWN INDICATION
     Route: 065
  6. SUPRANE [Suspect]
     Active Substance: DESFLURANE
     Indication: ANAESTHESIA PROCEDURE
     Dosage: DOSE UNIT: UNKNOWN
     Route: 065
  7. FUROSEMIDE. [Concomitant]
     Active Substance: FUROSEMIDE
     Indication: OEDEMA PERIPHERAL
     Dosage: DOSE UNIT: UNKNOWN
     Route: 065
  8. PHENTERMINE. [Concomitant]
     Active Substance: PHENTERMINE
     Indication: WEIGHT DECREASED
     Dosage: DOSE UNIT: UNKNOWN
     Route: 065
  9. SUCCINYLCHOLINE [Concomitant]
     Active Substance: SUCCINYLCHOLINE
     Indication: PRODUCT USED FOR UNKNOWN INDICATION
     Route: 065
  10. DROPERIDOL. [Suspect]
     Active Substance: DROPERIDOL
     Indication: PRODUCT USED FOR UNKNOWN INDICATION
     Dosage: DOSE UNIT: UNKNOWN
     Route: 065
  11. LIDOCAINE. [Concomitant]
     Active Substance: LIDOCAINE
     Indication: PRODUCT USED FOR UNKNOWN INDICATION
     Route: 065

REACTIONS (2)
  - Atrioventricular block second degree [Not Recovered/Not Resolved]
  - Electrocardiogram QT prolonged [Not Recovered/Not Resolved]
